FAERS Safety Report 9424597 (Version 1)
Quarter: 2013Q3

REPORT INFORMATION
  Report Type: Spontaneous
  Country: FR (occurrence: FR)
  Receive Date: 20130729
  Receipt Date: 20130729
  Transmission Date: 20140515
  Serious: Yes (Other)
  Sender: FDA-Public Use
  Company Number: FR-JNJFOC-20130710749

PATIENT
  Sex: 0

DRUGS (1)
  1. METHYLPHENIDATE [Suspect]
     Indication: PRODUCT USED FOR UNKNOWN INDICATION
     Route: 042

REACTIONS (18)
  - Drug diversion [Unknown]
  - Depression [Unknown]
  - Paranoia [Unknown]
  - Hallucination [Unknown]
  - Insomnia [Unknown]
  - Irritability [Unknown]
  - Incorrect route of drug administration [Unknown]
  - Intentional drug misuse [Unknown]
  - Sensory loss [Unknown]
  - Fatigue [Unknown]
  - Anxiety [Unknown]
  - Aggression [Unknown]
  - Weight decreased [Unknown]
  - Tachycardia [Unknown]
  - Abscess [Unknown]
  - Off label use [Unknown]
  - Drug tolerance [Unknown]
  - Withdrawal syndrome [Unknown]
